FAERS Safety Report 5174540-4 (Version None)
Quarter: 2006Q4

REPORT INFORMATION
  Report Type: 
  Country: None (occurrence: None)
  Receive Date: 20061214
  Receipt Date: 20060606
  Transmission Date: 20070319
  Serious: No
  Sender: FDA-Public Use
  Company Number: US-AMGEN-KDL182023

PATIENT
  Sex: Female
  Weight: 59.9 kg

DRUGS (1)
  1. ENBREL [Suspect]
     Indication: SPONDYLOARTHROPATHY
     Route: 058
     Dates: start: 20050901, end: 20060101

REACTIONS (3)
  - HODGKIN'S DISEASE STAGE III [None]
  - HYPERHIDROSIS [None]
  - URTICARIA [None]
